FAERS Safety Report 8597241-9 (Version None)
Quarter: 2012Q3

REPORT INFORMATION
  Report Type: 
  Country: None (occurrence: None)
  Receive Date: 20120816
  Receipt Date: 20120802
  Transmission Date: 20120928
  Serious: No
  Sender: FDA-Public Use
  Company Number: US-BIOGENIDEC-2012BI029139

PATIENT
  Age: 58 Year
  Sex: Female

DRUGS (4)
  1. INTERFERON BETA-1A [Suspect]
     Indication: MULTIPLE SCLEROSIS
     Route: 030
     Dates: start: 19990426, end: 20010426
  2. INTERFERON BETA-1A [Suspect]
     Route: 030
     Dates: start: 20111227, end: 20120228
  3. INTERFERON BETA-1A [Suspect]
     Route: 030
     Dates: start: 20120605
  4. INTERFERON BETA-1A [Suspect]
     Route: 030
     Dates: start: 20110413, end: 20110713

REACTIONS (1)
  - DRUG DOSE OMISSION [None]
